FAERS Safety Report 10183432 (Version 1)
Quarter: 2014Q2

REPORT INFORMATION
  Report Type: Spontaneous
  Country: FR (occurrence: FR)
  Receive Date: 20140520
  Receipt Date: 20140520
  Transmission Date: 20141212
  Serious: Yes (Life-Threatening, Hospitalization, Other)
  Sender: FDA-Public Use
  Company Number: FR-PFIZER INC-2014132775

PATIENT
  Age: 64 Year
  Sex: Female
  Weight: 50 kg

DRUGS (3)
  1. DALACIN [Suspect]
     Indication: ARTHRITIS BACTERIAL
     Dosage: 1800 MG, 1X/DAY
     Route: 048
     Dates: start: 20140326, end: 20140406
  2. VANCOMYCIN HYDROCHLORIDE [Suspect]
     Indication: ARTHRITIS BACTERIAL
     Dosage: 2 G, 1X/DAY
     Route: 042
     Dates: start: 20140326, end: 20140413
  3. BACTRIM [Concomitant]
     Indication: ARTHRITIS BACTERIAL
     Dosage: UNK
     Dates: start: 20140406, end: 20140413

REACTIONS (6)
  - Drug reaction with eosinophilia and systemic symptoms [Recovering/Resolving]
  - Shock [Recovering/Resolving]
  - Hepatitis [Recovering/Resolving]
  - Eosinophilia [Recovering/Resolving]
  - Lymphocyte morphology abnormal [Recovering/Resolving]
  - Generalised erythema [Recovering/Resolving]
